FAERS Safety Report 7683828-4 (Version None)
Quarter: 2011Q3

REPORT INFORMATION
  Report Type: 
  Country: None (occurrence: None)
  Receive Date: 20110815
  Receipt Date: 20110808
  Transmission Date: 20111222
  Serious: Yes (Other)
  Sender: FDA-Public Use
  Company Number: US-BAYER-2011-006292

PATIENT
  Sex: Female
  Weight: 94.331 kg

DRUGS (34)
  1. CITALOPRAM HYDROBROMIDE [Concomitant]
     Dosage: 10 MG, QD
  2. LEVOPHED [Concomitant]
     Dosage: UNK
     Dates: start: 20051020, end: 20051020
  3. INSULIN [Concomitant]
     Dosage: UNK
     Route: 058
     Dates: start: 20051020, end: 20051020
  4. LASIX [Concomitant]
     Dosage: 20 MG, TID
     Route: 042
  5. TRASYLOL [Suspect]
     Indication: MITRAL VALVE REPLACEMENT
     Dosage: 800 ML (400 ML X2)
     Route: 042
     Dates: start: 20051020, end: 20051020
  6. MIDAZOLAM HCL [Concomitant]
     Dosage: UNK
     Dates: start: 20051020, end: 20051020
  7. FUROSEMIDE [Concomitant]
     Dosage: UNK
     Dates: start: 20051020, end: 20051020
  8. PROTAMINE [Concomitant]
     Dosage: UNK
     Dates: start: 20051020, end: 20051020
  9. AMBIEN [Concomitant]
     Dosage: 10 MG, AT BEDTIME
  10. COUMADIN [Concomitant]
     Dosage: 5 MG, QD
  11. TOBRAMYCIN [Concomitant]
     Dosage: 160 MG, BID
  12. REGLAN [Concomitant]
     Dosage: 10 MG, QID
     Route: 048
  13. ISOSORBIDE DINITRATE [Concomitant]
     Dosage: 240 MG, BID
  14. FAMOTIDINE [Concomitant]
     Dosage: UNK
     Dates: start: 20051020, end: 20051020
  15. NITROGLYCERIN [Concomitant]
     Dosage: UNK
     Dates: start: 20051020, end: 20051020
  16. MUCOMYST [Concomitant]
     Dosage: UNK UNK, BID
  17. WELLBUTRIN [Concomitant]
     Dosage: 100 MG, QD
  18. TRASYLOL [Suspect]
     Indication: TRICUSPID VALVE REPAIR
     Dosage: 100 ML DRIP X1HR
     Route: 042
     Dates: start: 20051020, end: 20051020
  19. AMIODARONE HCL [Concomitant]
     Indication: TACHYCARDIA
     Dosage: 400 MG, BID
  20. TENORMIN [Concomitant]
     Dosage: UNK
     Dates: start: 20000101
  21. CALCIUM CHLORIDE [Concomitant]
     Dosage: UNK
     Dates: start: 20051020, end: 20051020
  22. CEFUROXIME [Concomitant]
     Dosage: UNK
     Dates: start: 20051020, end: 20051020
  23. COMBIVENT [Concomitant]
     Dosage: 4 PUFFS EVERY 4 HOURS
  24. TRASYLOL [Suspect]
     Indication: COX-MAZE PROCEDURE
     Dosage: 50 ML DRIP X4HRS
     Route: 042
     Dates: start: 20051020, end: 20051020
  25. LIDOCAINE [Concomitant]
     Dosage: UNK
     Dates: start: 20051020, end: 20051020
  26. MILRINONE [Concomitant]
     Dosage: UNK
     Dates: start: 20051020, end: 20051020
  27. REGITINE [PHENTOLAMINE HYDROCHLORIDE] [Concomitant]
     Dosage: UNK
     Dates: start: 20051020, end: 20051020
  28. ALPRAZOLAM [Concomitant]
     Dosage: 0.25 MG, TID, AS NEEDED
  29. LASIX + K [Concomitant]
     Dosage: UNK
     Dates: start: 20000101
  30. DIPHENHYDRAMINE HCL [Concomitant]
     Dosage: UNK
     Dates: start: 20051020, end: 20051020
  31. HEPARIN [Concomitant]
     Dosage: UNK
     Dates: start: 20051020, end: 20051020
  32. PANCURONIUM [Concomitant]
     Dosage: UNK
     Dates: start: 20051020, end: 20051020
  33. PREVACID [Concomitant]
     Dosage: 30 MG, QD
  34. LANTUS [Concomitant]
     Dosage: 130 U, AT BEDTIME
     Route: 058

REACTIONS (12)
  - MULTI-ORGAN FAILURE [None]
  - INJURY [None]
  - NERVOUSNESS [None]
  - FEAR OF DEATH [None]
  - RENAL INJURY [None]
  - UNEVALUABLE EVENT [None]
  - FEAR [None]
  - DEPRESSION [None]
  - EMOTIONAL DISTRESS [None]
  - RENAL FAILURE [None]
  - ANXIETY [None]
  - PAIN [None]
